FAERS Safety Report 6406782-1 (Version None)
Quarter: 2009Q4

REPORT INFORMATION
  Report Type: 
  Country: None (occurrence: None)
  Receive Date: 20091020
  Receipt Date: 20091008
  Transmission Date: 20100525
  Serious: Yes (Life-Threatening)
  Sender: FDA-Public Use
  Company Number: IT-PFIZER INC-2009259120

PATIENT
  Age: 44 Year

DRUGS (3)
  1. ZITHROMAX [Suspect]
     Indication: VIRAL INFECTION
     Dosage: UNK G, UNK
     Route: 048
     Dates: start: 20090802, end: 20090806
  2. HOMEOPATHIC PREPARATION [Concomitant]
  3. TPN [Concomitant]

REACTIONS (3)
  - DISSEMINATED INTRAVASCULAR COAGULATION [None]
  - RHABDOMYOLYSIS [None]
  - THROMBOCYTOPENIA [None]
